FAERS Safety Report 9346574 (Version 1)
Quarter: 2013Q2

REPORT INFORMATION
  Report Type: Spontaneous
  Country: US (occurrence: US)
  Receive Date: 20130613
  Receipt Date: 20130613
  Transmission Date: 20140414
  Serious: Yes (Hospitalization)
  Sender: FDA-Public Use
  Company Number: US-BAYER-2013-072257

PATIENT
  Age: 22 Year
  Sex: Female

DRUGS (4)
  1. GIANVI [Suspect]
  2. YASMIN [Suspect]
  3. DEMEROL [Concomitant]
  4. VICODIN [Concomitant]
     Indication: PAIN

REACTIONS (2)
  - Deep vein thrombosis [Recovered/Resolved]
  - Pelvic venous thrombosis [Recovered/Resolved]
